FAERS Safety Report 24033889 (Version 5)
Quarter: 2024Q3

REPORT INFORMATION
  Report Type: Spontaneous
  Country: FR (occurrence: FR)
  Receive Date: 20240701
  Receipt Date: 20240726
  Transmission Date: 20241016
  Serious: Yes (Other)
  Sender: MYLAN
  Company Number: FR-MYLANLABS-2024M1058613

PATIENT
  Age: 45 Year
  Sex: Male

DRUGS (5)
  1. ZOLPIDEM [Suspect]
     Active Substance: ZOLPIDEM TARTRATE
     Indication: Insomnia
     Dosage: 10 MILLIGRAM
     Route: 065
  2. ZOLPIDEM [Suspect]
     Active Substance: ZOLPIDEM TARTRATE
     Dosage: 5 MG (1/2 TABLET)
     Route: 065
  3. ZOLPIDEM [Suspect]
     Active Substance: ZOLPIDEM TARTRATE
     Dosage: MORE THAN 10 MG
     Route: 065
  4. ZOLPIDEM [Suspect]
     Active Substance: ZOLPIDEM TARTRATE
     Dosage: 9 MILLIGRAM
     Route: 065
  5. ZOLPIDEM [Suspect]
     Active Substance: ZOLPIDEM TARTRATE
     Dosage: 8 MILLIGRAM
     Route: 065

REACTIONS (11)
  - Weaning failure [Unknown]
  - Drug ineffective [Unknown]
  - Drug dependence [Not Recovered/Not Resolved]
  - Drug abuse [Unknown]
  - Insomnia [Unknown]
  - Malaise [Unknown]
  - Feeling abnormal [Unknown]
  - Off label use [Unknown]
  - Wrong technique in product usage process [Unknown]
  - Intentional product misuse [Unknown]
  - Intentional overdose [Unknown]
